FAERS Safety Report 8579797-5 (Version None)
Quarter: 2012Q3

REPORT INFORMATION
  Report Type: 
  Country: None (occurrence: None)
  Receive Date: 20120808
  Receipt Date: 20120730
  Transmission Date: 20120928
  Serious: Yes (Other)
  Sender: FDA-Public Use
  Company Number: US-ASTRAZENECA-2012SE54563

PATIENT
  Sex: Male

DRUGS (23)
  1. FOLIC ACID [Suspect]
  2. FLUOROURACIL [Suspect]
     Dosage: EVERY 12 HOURS
  3. NORVIR [Suspect]
  4. ACYCLOVIR [Suspect]
  5. CRESTOR [Suspect]
     Route: 048
  6. MULTI-VITAMIN [Suspect]
     Dosage: DAILY
  7. SPIRONOLACTONE [Suspect]
  8. BUPROPION HYDROCHLORIDE [Suspect]
  9. PROCHLORPERAZINE [Suspect]
  10. OXEGEN [Suspect]
     Dosage: 2 LITERS WHILE SLEEPING AND AS NEEDED
  11. ISENTRESS [Suspect]
  12. ALBUTEROL SULFATE AND IPRATROPIUM BROMIDE [Suspect]
     Dosage: 3/5 MG THREE TIMES A DAY
     Route: 055
  13. BYSTOLIC [Suspect]
  14. NEURONTIN [Suspect]
     Dosage: 300 MG THREE TIMES A DAY AS NEEDED
  15. PRILOSEC [Suspect]
     Route: 048
  16. ASPIRIN [Suspect]
  17. PREZISTA [Suspect]
  18. FOSAMAX [Suspect]
  19. PLAVIX [Suspect]
  20. VITAMIN D [Suspect]
  21. TESTOSTERONE [Suspect]
  22. LASIX [Suspect]
     Dosage: 40 MG DAILY AND AS NEEDED
  23. MAG OXIDE CYPRESS [Suspect]

REACTIONS (16)
  - ACQUIRED IMMUNODEFICIENCY SYNDROME [None]
  - CEREBROVASCULAR ACCIDENT [None]
  - ASTHMA [None]
  - BRONCHITIS CHRONIC [None]
  - HERNIA [None]
  - HEADACHE [None]
  - NEUROPATHY PERIPHERAL [None]
  - PNEUMONIA [None]
  - GASTRIC ULCER [None]
  - CUSHING'S SYNDROME [None]
  - EPIDIDYMITIS [None]
  - CARDIAC ARREST [None]
  - HAEMORRHOIDS [None]
  - MYOCARDIAL INFARCTION [None]
  - FATIGUE [None]
  - DEPRESSION [None]
